FAERS Safety Report 10349111 (Version 1)
Quarter: 2014Q3

REPORT INFORMATION
  Report Type: Spontaneous
  Country: US (occurrence: US)
  Receive Date: 20140730
  Receipt Date: 20140730
  Transmission Date: 20150326
  Serious: Yes (Hospitalization)
  Sender: FDA-Public Use
  Company Number: US-SUN PHARMACEUTICAL INDUSTRIES LTD-2014SUN01660

PATIENT

DRUGS (6)
  1. RIVASTIGMINE [Suspect]
     Active Substance: RIVASTIGMINE
     Indication: PRODUCT USED FOR UNKNOWN INDICATION
     Dosage: 9.5 MG, PATCH
     Route: 065
  2. TRAZODONE [Concomitant]
     Active Substance: TRAZODONE HYDROCHLORIDE
     Dosage: 25 MG AT NIGHT
  3. DONEPEZIL HYDROCHLORIDE TABLETS, 5MG [Suspect]
     Active Substance: DONEPEZIL HYDROCHLORIDE
     Indication: PRODUCT USED FOR UNKNOWN INDICATION
     Dosage: 10 MG/DAY
     Route: 065
  4. CARBIDOPA/LEVODOPA [Concomitant]
     Active Substance: CARBIDOPA\LEVODOPA
     Dosage: 25/100 MG, BID
  5. METOPROLOL XL [Concomitant]
     Active Substance: METOPROLOL
     Dosage: 25 MG/DAY
  6. WARFARIN [Concomitant]
     Active Substance: WARFARIN
     Indication: ATRIAL FIBRILLATION
     Dosage: 5 MG/DAY

REACTIONS (7)
  - Lethargy [Recovered/Resolved]
  - Sinus bradycardia [Recovered/Resolved]
  - Hyporesponsive to stimuli [Recovered/Resolved]
  - Miosis [Recovered/Resolved]
  - Incoherent [Recovered/Resolved]
  - Toxicity to various agents [Recovering/Resolving]
  - Confusional state [Recovered/Resolved]
